FAERS Safety Report 6757708-2 (Version None)
Quarter: 2010Q2

REPORT INFORMATION
  Report Type: 
  Country: None (occurrence: None)
  Receive Date: 20100604
  Receipt Date: 20100604
  Transmission Date: 20101027
  Serious: Yes (Other)
  Sender: FDA-Public Use
  Company Number: None

PATIENT
  Sex: Female
  Weight: 102.5129 kg

DRUGS (10)
  1. ISTODAX [Suspect]
     Indication: MYCOSIS FUNGOIDES
     Dosage: 28MG WEEKLY IV DRIP WEEKLY X 3
     Route: 041
     Dates: start: 20100504, end: 20100518
  2. KYTRIL [Suspect]
  3. ALENDRONATE SODIUM [Concomitant]
  4. CYPROHEPTADINE HCL [Concomitant]
  5. TRIAMCINOLONE [Concomitant]
  6. HTCZ [Concomitant]
  7. ATENOLOL [Concomitant]
  8. CARVEDILOL [Concomitant]
  9. ESCITALOPRAM [Concomitant]
  10. LEVEOTHYROXINE [Concomitant]

REACTIONS (2)
  - BLOOD AMYLASE INCREASED [None]
  - PAROTITIS [None]
